FAERS Safety Report 7597320-9 (Version None)
Quarter: 2011Q3

REPORT INFORMATION
  Report Type: 
  Country: None (occurrence: None)
  Receive Date: 20110708
  Receipt Date: 20110509
  Transmission Date: 20111222
  Serious: No
  Sender: FDA-Public Use
  Company Number: US-GLAXOSMITHKLINE-A0926592A

PATIENT
  Age: 48 Year
  Sex: Male

DRUGS (2)
  1. FLOVENT [Suspect]
     Indication: EOSINOPHILIC OESOPHAGITIS
     Route: 055
  2. TINOLOL [Concomitant]

REACTIONS (4)
  - DIARRHOEA [None]
  - ABDOMINAL PAIN [None]
  - SWELLING FACE [None]
  - RASH [None]
